FAERS Safety Report 4848930-0 (Version None)
Quarter: 2005Q4

REPORT INFORMATION
  Report Type: 
  Country: None (occurrence: None)
  Receive Date: 20051208
  Receipt Date: 20051129
  Transmission Date: 20060501
  Serious: Yes (Death, Other)
  Sender: FDA-Public Use
  Company Number: US-MERCK-0511USA04493

PATIENT
  Sex: Female

DRUGS (2)
  1. VIOXX [Suspect]
     Indication: PAIN
     Route: 048
     Dates: start: 20010101
  2. CELEBREX [Concomitant]
     Route: 065
     Dates: start: 20010101, end: 20030101

REACTIONS (2)
  - DEATH [None]
  - MYOCARDIAL INFARCTION [None]
